FAERS Safety Report 6024175-6 (Version None)
Quarter: 2008Q4

REPORT INFORMATION
  Report Type: 
  Country: None (occurrence: None)
  Receive Date: 20081224
  Receipt Date: 20081218
  Transmission Date: 20090506
  Serious: Yes (Death)
  Sender: FDA-Public Use
  Company Number: 2008S1021497

PATIENT
  Age: 36 Year
  Sex: Female

DRUGS (5)
  1. AZATHIOPRINE [Suspect]
     Indication: IMMUNOSUPPRESSION
     Dosage: 100 MG; TWICE A DAY
     Dates: end: 20050601
  2. PREDNISOLONE [Suspect]
     Indication: IMMUNOSUPPRESSION
     Dosage: 60 MG; DAILY
  3. MYCOPHENOLATE MOFETIL [Suspect]
     Indication: IMMUNOSUPPRESSION
  4. CYCLOSPORINE [Suspect]
     Indication: IMMUNOSUPPRESSION
  5. INTERFERON-ALPHA (INTERFERON ALFA-2A) [Concomitant]

REACTIONS (8)
  - ACUTE GRAFT VERSUS HOST DISEASE [None]
  - ACUTE MYELOID LEUKAEMIA [None]
  - ANTINUCLEAR ANTIBODY POSITIVE [None]
  - AUTOANTIBODY POSITIVE [None]
  - MICROANGIOPATHY [None]
  - MYELOFIBROSIS [None]
  - RHEUMATOID FACTOR POSITIVE [None]
  - THERAPEUTIC RESPONSE DECREASED [None]
